FAERS Safety Report 19855081 (Version 2)
Quarter: 2021Q3

REPORT INFORMATION
  Report Type: Spontaneous
  Country: US (occurrence: US)
  Receive Date: 20210920
  Receipt Date: 20210925
  Transmission Date: 20211014
  Serious: No
  Sender: FDA-Public Use
  Company Number: US-GLAXOSMITHKLINE-US2021196621

PATIENT
  Sex: Female

DRUGS (1)
  1. BENLYSTA [Suspect]
     Active Substance: BELIMUMAB
     Indication: SYSTEMIC LUPUS ERYTHEMATOSUS
     Dosage: UNK
     Dates: start: 202107

REACTIONS (6)
  - Injection site reaction [Unknown]
  - Injection site pain [Recovered/Resolved]
  - Nausea [Unknown]
  - Wrong technique in device usage process [Unknown]
  - Nervousness [Unknown]
  - Illness [Unknown]

NARRATIVE: CASE EVENT DATE: 2021
